FAERS Safety Report 24835082 (Version 2)
Quarter: 2025Q1

REPORT INFORMATION
  Report Type: Spontaneous
  Country: CN (occurrence: CN)
  Receive Date: 20250113
  Receipt Date: 20250220
  Transmission Date: 20250409
  Serious: Yes (Hospitalization, Other)
  Sender: JOHNSON AND JOHNSON
  Company Number: CN-JNJFOC-20250123988

PATIENT

DRUGS (7)
  1. DARZALEX [Suspect]
     Active Substance: DARATUMUMAB
     Indication: Plasma cell myeloma
  2. DARZALEX [Suspect]
     Active Substance: DARATUMUMAB
  3. VELCADE [Suspect]
     Active Substance: BORTEZOMIB
     Indication: Plasma cell myeloma
  4. CYCLOPHOSPHAMIDE [Suspect]
     Active Substance: CYCLOPHOSPHAMIDE
     Indication: Plasma cell myeloma
  5. DEXAMETHASONE [Suspect]
     Active Substance: DEXAMETHASONE
     Indication: Plasma cell myeloma
  6. LENALIDOMIDE [Suspect]
     Active Substance: LENALIDOMIDE
     Indication: Plasma cell myeloma
  7. POMALIDOMIDE [Suspect]
     Active Substance: POMALIDOMIDE
     Indication: Plasma cell myeloma

REACTIONS (17)
  - Respiratory failure [Unknown]
  - Left ventricular failure [Unknown]
  - Lactic acidosis [Unknown]
  - Pericardial effusion [Unknown]
  - Pulmonary tuberculosis [Unknown]
  - Pyrexia [Unknown]
  - Productive cough [Unknown]
  - Agitation [Unknown]
  - Delusion [Unknown]
  - Agnosia [Unknown]
  - Mental disorder [Unknown]
  - Influenza [Unknown]
  - Xanthopsia [Unknown]
  - Pleural effusion [Unknown]
  - Cardiomegaly [Unknown]
  - Abnormal uterine bleeding [Unknown]
  - Aggression [Unknown]
